FAERS Safety Report 6958044-1 (Version None)
Quarter: 2010Q3

REPORT INFORMATION
  Report Type: 
  Country: None (occurrence: None)
  Receive Date: 20100831
  Receipt Date: 20100825
  Transmission Date: 20110219
  Serious: Yes (Hospitalization)
  Sender: FDA-Public Use
  Company Number: US-BRISTOL-MYERS SQUIBB COMPANY-15256605

PATIENT
  Age: 58 Year
  Sex: Male
  Weight: 94 kg

DRUGS (2)
  1. ERBITUX [Suspect]
     Indication: LIP AND/OR ORAL CAVITY CANCER
     Dosage: 05AUG10:400MG/M2 10AUG10:250MG/M2 17AUG10:250MG/M2
     Dates: start: 20100805
  2. RADIATION THERAPY [Suspect]
     Indication: LIP AND/OR ORAL CAVITY CANCER
     Dosage: 1800CGY.IMRT NO OF FRAC:9 NO OF ELAPS:13
     Dates: start: 20100805, end: 20100823

REACTIONS (1)
  - ARTHRALGIA [None]
